FAERS Safety Report 14587211 (Version 2)
Quarter: 2018Q1

REPORT INFORMATION
  Report Type: Spontaneous
  Country: ES (occurrence: ES)
  Receive Date: 20180301
  Receipt Date: 20180309
  Transmission Date: 20180509
  Serious: Yes (Hospitalization)
  Sender: FDA-Public Use
  Company Number: ES-PFIZER INC-2018082053

PATIENT
  Age: 83 Year
  Sex: Female

DRUGS (9)
  1. BISOPROLOL [Concomitant]
     Active Substance: BISOPROLOL
     Dosage: 1-0-0
     Route: 048
     Dates: start: 20160621
  2. LORMETAZEPAM [Concomitant]
     Active Substance: LORMETAZEPAM
     Dosage: 0-0-1
     Route: 048
  3. OMEPRAZOL [Concomitant]
     Active Substance: OMEPRAZOLE
     Dosage: 1 CP DAILY
     Route: 048
     Dates: start: 20160621
  4. DOBUPAL RETARD [Suspect]
     Active Substance: VENLAFAXINE HYDROCHLORIDE
     Dosage: 1 CP, DAILY
     Route: 048
     Dates: start: 20160621, end: 20170510
  5. ATORVASTATINA [Concomitant]
     Active Substance: ATORVASTATIN
     Dosage: 0-0-1
     Route: 048
     Dates: start: 20160621
  6. SALIDUR [Concomitant]
     Dosage: 1.-0-0
     Route: 048
     Dates: start: 20170403, end: 20170511
  7. ENALAPRIL [Concomitant]
     Active Substance: ENALAPRIL
     Dosage: 1-0-0
     Route: 048
     Dates: start: 20160621
  8. ADIRO [Concomitant]
     Active Substance: ASPIRIN
     Dosage: 0-1-0, 1X/DAY
     Route: 048
     Dates: start: 20160621
  9. ELECOR [Suspect]
     Active Substance: EPLERENONE
     Dosage: 1-0-0
     Route: 048
     Dates: start: 20160621, end: 20170510

REACTIONS (1)
  - Partial seizures with secondary generalisation [Recovered/Resolved]

NARRATIVE: CASE EVENT DATE: 20170510
